FAERS Safety Report 13389041 (Version 2)
Quarter: 2017Q2

REPORT INFORMATION
  Report Type: Spontaneous
  Country: BR (occurrence: BR)
  Receive Date: 20170330
  Receipt Date: 20170407
  Transmission Date: 20170830
  Serious: Yes (Life-Threatening, Other)
  Sender: FDA-Public Use
  Company Number: BR-PFIZER INC-2017134895

PATIENT
  Age: 72 Year
  Sex: Male

DRUGS (4)
  1. CEFTRIAXONE SODIUM. [Suspect]
     Active Substance: CEFTRIAXONE SODIUM
     Indication: BACTERIAL INFECTION
     Dosage: UNK
  2. NOREPINEPHRINE. [Concomitant]
     Active Substance: NOREPINEPHRINE
     Indication: HAEMODYNAMIC INSTABILITY
     Dosage: DOSES UP TO 1.0 MCG/KG/MIN
  3. PENICILLIN G /00000901/ [Suspect]
     Active Substance: PENICILLIN G
     Indication: BACTERIAL INFECTION
     Dosage: UNK
  4. GENTAMICIN. [Suspect]
     Active Substance: GENTAMICIN
     Indication: BACTERIAL INFECTION
     Dosage: UNK

REACTIONS (4)
  - Condition aggravated [Unknown]
  - Cardiogenic shock [Unknown]
  - Drug ineffective [Unknown]
  - Pulmonary oedema [Unknown]
